FAERS Safety Report 7341574-0 (Version None)
Quarter: 2011Q1

REPORT INFORMATION
  Report Type: 
  Country: None (occurrence: None)
  Receive Date: 20110309
  Receipt Date: 20110210
  Transmission Date: 20110831
  Serious: No
  Sender: FDA-Public Use
  Company Number: US-B.I. PHARMACEUTICALS,INC./RIDGEFIELD-2010-BP-15419BP

PATIENT
  Sex: Female

DRUGS (11)
  1. METANX [Concomitant]
  2. PRADAXA [Suspect]
     Indication: ATRIAL FIBRILLATION
     Dosage: 300 MG
     Route: 048
     Dates: start: 20101207, end: 20110108
  3. METANX [Concomitant]
     Route: 048
     Dates: start: 20090813, end: 20090923
  4. ASCORBIC ACID [Concomitant]
     Dosage: 500 MG
     Route: 048
  5. PRAVASTATIN [Concomitant]
     Indication: BLOOD CHOLESTEROL
     Dosage: 20 MG
     Route: 048
  6. MULTE-VITAMIN AND MINERALS [Concomitant]
     Route: 048
  7. CALCIUM + D [Concomitant]
  8. DOXYCYCLINE [Concomitant]
     Indication: VIRAL INFECTION
     Dosage: 20 MG
     Route: 048
  9. DOXYCYCLINE [Concomitant]
     Indication: DENTAL CARIES
  10. GLUCOSAMINE [Concomitant]
     Route: 048
  11. MEGA RED KRILL OIL/OMEGA 3/EPA/DHA [Concomitant]

REACTIONS (3)
  - BLOOD URINE PRESENT [None]
  - DIZZINESS [None]
  - JOINT SWELLING [None]
